FAERS Safety Report 26061237 (Version 1)
Quarter: 2025Q4

REPORT INFORMATION
  Report Type: Spontaneous
  Country: US (occurrence: US)
  Receive Date: 20251118
  Receipt Date: 20251118
  Transmission Date: 20260118
  Serious: No
  Sender: INCYTE
  Company Number: US-EVENT-004812

PATIENT
  Age: 57 Year

DRUGS (1)
  1. OPZELURA [Suspect]
     Active Substance: RUXOLITINIB PHOSPHATE
     Indication: Product used for unknown indication
     Dosage: 1.5 PERCENT, BID (APPLY A THIN LAYER TO AFFECTED AREA AS DIRECTED, NOT TO EXCEED 60 GRAM PER WEEK)
     Route: 065

REACTIONS (2)
  - Sinusitis [Unknown]
  - Middle ear effusion [Unknown]
